FAERS Safety Report 6417808-3 (Version None)
Quarter: 2009Q4

REPORT INFORMATION
  Report Type: 
  Country: None (occurrence: None)
  Receive Date: 20091027
  Receipt Date: 20091027
  Transmission Date: 20100525
  Serious: No
  Sender: FDA-Public Use
  Company Number: None

PATIENT
  Sex: Female
  Weight: 56.7 kg

DRUGS (1)
  1. AMANTADINE HCL [Suspect]
     Indication: PARKINSONISM
     Dosage: 100MG PO BID
     Route: 048

REACTIONS (5)
  - ASTHENIA [None]
  - BLOOD PRESSURE SYSTOLIC INCREASED [None]
  - DIZZINESS [None]
  - HEADACHE [None]
  - VISION BLURRED [None]
